FAERS Safety Report 10018945 (Version 2)
Quarter: 2014Q2

REPORT INFORMATION
  Report Type: Spontaneous
  Country: CO (occurrence: CO)
  Receive Date: 20140318
  Receipt Date: 20140409
  Transmission Date: 20141212
  Serious: Yes (Life-Threatening, Hospitalization, Disabling, Other)
  Sender: FDA-Public Use
  Company Number: CO-GLAXOSMITHKLINE-A1065220A

PATIENT
  Age: 44 Year
  Sex: Female

DRUGS (4)
  1. IMIGRAN [Suspect]
     Indication: MIGRAINE
     Dosage: 50MG PER DAY
     Route: 048
     Dates: start: 2010
  2. SUMATRIPTAN SUCCINATE [Suspect]
     Indication: MIGRAINE
     Route: 058
  3. BOTULINUM TOXIN [Suspect]
     Indication: MIGRAINE
     Route: 065
     Dates: start: 201303
  4. VENLAFAXINE [Suspect]

REACTIONS (9)
  - Cardiotoxicity [Unknown]
  - Cardiac pacemaker insertion [Unknown]
  - Chest pain [Recovered/Resolved with Sequelae]
  - Migraine [Unknown]
  - Bundle branch block left [Unknown]
  - Ischaemia [Unknown]
  - Chest discomfort [Unknown]
  - Dyspnoea [Unknown]
  - Ejection fraction decreased [Unknown]
